FAERS Safety Report 9430145 (Version 1)
Quarter: 2013Q3

REPORT INFORMATION
  Report Type: Spontaneous
  Country: US (occurrence: US)
  Receive Date: 20130730
  Receipt Date: 20130730
  Transmission Date: 20140515
  Serious: Yes (Other)
  Sender: FDA-Public Use
  Company Number: US-CELGENEUS-163-POMAL-13073129

PATIENT
  Age: 79 Year
  Sex: Female

DRUGS (2)
  1. POMALYST [Suspect]
     Indication: PLASMA CELL MYELOMA
     Dosage: 2 MILLIGRAM
     Route: 048
     Dates: start: 20130227
  2. POMALYST [Suspect]
     Dosage: 3 MILLIGRAM
     Route: 048
     Dates: start: 201304

REACTIONS (1)
  - Abdominal discomfort [Unknown]
